FAERS Safety Report 13455684 (Version 1)
Quarter: 2017Q2

REPORT INFORMATION
  Report Type: Spontaneous
  Country: US (occurrence: US)
  Receive Date: 20170419
  Receipt Date: 20170419
  Transmission Date: 20170830
  Serious: No
  Sender: FDA-Public Use
  Company Number: None

PATIENT

DRUGS (1)
  1. POTASSIUM CHLORIDE 10MEQ/100ML [Suspect]
     Active Substance: POTASSIUM CHLORIDE
     Dosage: DOSAGE FORM - INJECTABLE?ADM ROUTE - INJECTION?TYPE - IV BAG?SIZE - 100 ML

REACTIONS (1)
  - Product label confusion [None]
